FAERS Safety Report 4349825-1 (Version None)
Quarter: 2004Q2

REPORT INFORMATION
  Report Type: 
  Country: None (occurrence: None)
  Receive Date: 20040426
  Receipt Date: 20040420
  Transmission Date: 20050107
  Serious: Yes (Life-Threatening, Hospitalization)
  Sender: FDA-Public Use
  Company Number: 2004-03-2204

PATIENT
  Age: 47 Year
  Sex: Female
  Weight: 63.9572 kg

DRUGS (15)
  1. VIOXX [Suspect]
     Dosage: 25 MG QD ORAL
     Route: 048
  2. ALTACE [Suspect]
     Dosage: 10 MG QD ORAL
     Route: 048
  3. ASPIRIN [Suspect]
     Dosage: 81 MG QD ORAL
     Route: 048
  4. PEG-INTRON [Suspect]
     Indication: HEPATITIS C
     Dosage: 96 MCG QWK SUBCUTANEOUS
     Route: 058
     Dates: start: 20040212, end: 20040322
  5. REBETOL [Suspect]
     Indication: HEPATITIS C
     Dosage: 800 MG QD ORAL
     Route: 048
     Dates: start: 20040212, end: 20040322
  6. LITHIUM CARBONATE [Suspect]
     Indication: AGITATION
     Dosage: 300  BID
     Dates: start: 20040309
  7. LITHIUM CARBONATE [Suspect]
     Indication: DEPRESSION
     Dosage: 300  BID
     Dates: start: 20040309
  8. GEODON [Concomitant]
  9. ZYPREXA [Concomitant]
  10. LEXAPRO [Concomitant]
  11. PROTONIX [Concomitant]
  12. NEURONTIN [Concomitant]
  13. CLONAZEPAM [Concomitant]
  14. HYDROCODONE [Concomitant]
  15. PHENERGAN [Concomitant]

REACTIONS (5)
  - ANAEMIA [None]
  - ATAXIA [None]
  - JAUNDICE [None]
  - MENTAL STATUS CHANGES [None]
  - THERAPEUTIC AGENT TOXICITY [None]
